FAERS Safety Report 21408857 (Version 4)
Quarter: 2022Q4

REPORT INFORMATION
  Report Type: Report from Study
  Country: LB (occurrence: LB)
  Receive Date: 20221004
  Receipt Date: 20221209
  Transmission Date: 20230113
  Serious: No
  Sender: FDA-Public Use
  Company Number: LB-NOVARTISPH-NVSC2022LB222561

PATIENT
  Age: 41 Year
  Sex: Female
  Weight: 63 kg

DRUGS (7)
  1. HYRIMOZ [Suspect]
     Active Substance: ADALIMUMAB-ADAZ
     Indication: Ankylosing spondylitis
     Dosage: 40 MG, Q2W
     Route: 058
     Dates: start: 20221001
  2. HYRIMOZ [Suspect]
     Active Substance: ADALIMUMAB-ADAZ
     Dosage: 40 MG, Q2W
     Route: 058
     Dates: start: 20221115
  3. HYRIMOZ [Suspect]
     Active Substance: ADALIMUMAB-ADAZ
     Dosage: 40 MG, Q2W
     Route: 058
     Dates: start: 20221201
  4. SOLPADEINE [Concomitant]
     Indication: Wound
     Dosage: 500 MG
     Route: 048
     Dates: start: 20220923, end: 202210
  5. AUGMENTIN [Concomitant]
     Active Substance: AMOXICILLIN\CLAVULANATE POTASSIUM
     Indication: Infection prophylaxis
     Dosage: 1 G
     Route: 048
     Dates: start: 20220923, end: 202210
  6. SILVER SULFADIAZINE [Concomitant]
     Active Substance: SILVER SULFADIAZINE
     Indication: Infection prophylaxis
     Dosage: UNK
     Route: 061
     Dates: start: 20220923, end: 202210
  7. CELECOXIB [Concomitant]
     Active Substance: CELECOXIB
     Indication: Wound
     Dosage: 200 MG
     Route: 048
     Dates: start: 20220923, end: 202210

REACTIONS (1)
  - Intentional product misuse [Unknown]

NARRATIVE: CASE EVENT DATE: 20221129
